FAERS Safety Report 7605480-6 (Version None)
Quarter: 2011Q3

REPORT INFORMATION
  Report Type: 
  Country: None (occurrence: None)
  Receive Date: 20110713
  Receipt Date: 20110711
  Transmission Date: 20111222
  Serious: No
  Sender: FDA-Public Use
  Company Number: US-PFIZER INC-2011156347

PATIENT
  Sex: Male
  Weight: 77.098 kg

DRUGS (1)
  1. LIPITOR [Suspect]
     Indication: BLOOD CHOLESTEROL INCREASED
     Dosage: 20 MG, 2X/DAY
     Route: 048
     Dates: start: 20110501

REACTIONS (2)
  - PAIN IN EXTREMITY [None]
  - BACK PAIN [None]
